FAERS Safety Report 13853155 (Version 1)
Quarter: 2017Q3

REPORT INFORMATION
  Report Type: Spontaneous
  Country: CN (occurrence: CN)
  Receive Date: 20170809
  Receipt Date: 20170809
  Transmission Date: 20171127
  Serious: Yes (Hospitalization)
  Sender: FDA-Public Use
  Company Number: CN-G+W LABS-GW2017CN000217

PATIENT

DRUGS (1)
  1. METRONIDAZOLE. [Suspect]
     Active Substance: METRONIDAZOLE
     Indication: HELICOBACTER INFECTION
     Dosage: 200 MG, TID
     Route: 048
     Dates: start: 201602, end: 201608

REACTIONS (4)
  - Hypertriglyceridaemia [Unknown]
  - Toxic encephalopathy [Recovered/Resolved]
  - Liver injury [Unknown]
  - Pneumonia mycoplasmal [Unknown]

NARRATIVE: CASE EVENT DATE: 2016
